FAERS Safety Report 4785117-4 (Version None)
Quarter: 2005Q3

REPORT INFORMATION
  Report Type: 
  Country: None (occurrence: None)
  Receive Date: 20050928
  Receipt Date: 20050914
  Transmission Date: 20060218
  Serious: Yes (Hospitalization)
  Sender: FDA-Public Use
  Company Number: DE-2005-012764

PATIENT
  Age: 62 Year
  Sex: Male
  Weight: 96 kg

DRUGS (14)
  1. BETASERON [Suspect]
     Indication: MULTIPLE SCLEROSIS
     Dosage: SUBCUTANEOUS
     Route: 058
     Dates: start: 20020101, end: 20050707
  2. HEPARIN [Concomitant]
  3. RAMIPRIL [Concomitant]
  4. BELOC MITE [Concomitant]
  5. MAGNESIUM (MAGNESIUM) [Concomitant]
  6. CARBAMZAPINE (CARBAMZAPINE) [Concomitant]
  7. ASPIRIN [Concomitant]
  8. ATORVASTATIN CALCIUM [Concomitant]
  9. UNAT (TORASEMIDE) [Concomitant]
  10. DIAZEPAM [Concomitant]
  11. PANTOPRAZOLE SODIUM [Concomitant]
  12. CORVATION ^HOECHST^ (MOLSIDOMINE) [Concomitant]
  13. CORANGIN ^NOVARTIS^ [Concomitant]
  14. OXYBUTON (OXYBUYNIN HYDROCHLORIDE) [Concomitant]

REACTIONS (2)
  - MYOCARDIAL INFARCTION [None]
  - THROMBOCYTOPENIA [None]
